FAERS Safety Report 7642973-X (Version None)
Quarter: 2011Q3

REPORT INFORMATION
  Report Type: 
  Country: None (occurrence: None)
  Receive Date: 20110728
  Receipt Date: 20110725
  Transmission Date: 20111222
  Serious: Yes (Life-Threatening, Hospitalization)
  Sender: FDA-Public Use
  Company Number: US-BAYER-2011-025255

PATIENT
  Age: 51 Year
  Sex: Female

DRUGS (3)
  1. ADVAIR DISKUS 100/50 [Concomitant]
  2. AVELOX [Suspect]
     Indication: PHARYNGITIS
     Dosage: 400 MG, UNK
     Route: 048
     Dates: start: 20090101, end: 20090101
  3. AVELOX [Suspect]
     Indication: EAR INFECTION

REACTIONS (13)
  - DYSPNOEA [None]
  - CHEST DISCOMFORT [None]
  - SWELLING [None]
  - OCULAR HYPERAEMIA [None]
  - ASTHENIA [None]
  - ERYTHEMA [None]
  - WHEEZING [None]
  - THROAT TIGHTNESS [None]
  - HYPERSENSITIVITY [None]
  - PRURITUS [None]
  - GENERALISED ERYTHEMA [None]
  - INFLAMMATION [None]
  - FEELING ABNORMAL [None]
